FAERS Safety Report 11304883 (Version 1)
Quarter: 2015Q3

REPORT INFORMATION
  Report Type: Spontaneous
  Country: US (occurrence: US)
  Receive Date: 20150723
  Receipt Date: 20150723
  Transmission Date: 20151125
  Serious: No
  Sender: FDA-Public Use
  Company Number: US-JNJFOC-20150101263

PATIENT
  Age: 19 Year
  Sex: Female
  Weight: 58.97 kg

DRUGS (5)
  1. ESCITALOPRAM [Concomitant]
     Active Substance: ESCITALOPRAM OXALATE
     Indication: ANXIETY
     Route: 065
  2. ZYRTEC [Suspect]
     Active Substance: CETIRIZINE HYDROCHLORIDE
     Route: 048
  3. ZYRTEC [Suspect]
     Active Substance: CETIRIZINE HYDROCHLORIDE
     Indication: MULTIPLE ALLERGIES
     Route: 048
     Dates: start: 20141227
  4. CRANBERRY TABS [Concomitant]
     Indication: PROPHYLAXIS
     Route: 065
  5. ANTI INFLAMMATORY [Concomitant]
     Indication: JOINT INJURY
     Route: 065

REACTIONS (3)
  - Eye swelling [Recovering/Resolving]
  - Eye pruritus [Not Recovered/Not Resolved]
  - Product use issue [Unknown]

NARRATIVE: CASE EVENT DATE: 20141229
